FAERS Safety Report 23384025 (Version 2)
Quarter: 2024Q4

REPORT INFORMATION
  Report Type: Spontaneous
  Country: SE (occurrence: SE)
  Receive Date: 20240109
  Receipt Date: 20241008
  Transmission Date: 20250114
  Serious: Yes (Death, Other)
  Sender: MERCK
  Company Number: None

PATIENT
  Age: 82 Year
  Sex: Female

DRUGS (17)
  1. PEMBROLIZUMAB [Suspect]
     Active Substance: PEMBROLIZUMAB
     Indication: Non-small cell lung cancer stage IV
     Dosage: 200 MILLIGRAM, Q3W
     Route: 042
     Dates: start: 20230103, end: 20230103
  2. PEMBROLIZUMAB [Suspect]
     Active Substance: PEMBROLIZUMAB
     Dosage: 200 MILLIGRAM, Q3W
     Route: 042
     Dates: start: 20230123, end: 20230123
  3. PEMBROLIZUMAB [Suspect]
     Active Substance: PEMBROLIZUMAB
     Dosage: 200 MILLIGRAM, Q3W
     Route: 042
     Dates: start: 20230223, end: 20230223
  4. PEMBROLIZUMAB [Suspect]
     Active Substance: PEMBROLIZUMAB
     Dosage: 200 MILLIGRAM, Q3W
     Route: 042
     Dates: start: 20230316, end: 20230316
  5. PEMBROLIZUMAB [Suspect]
     Active Substance: PEMBROLIZUMAB
     Dosage: 200 MILLIGRAM, Q3W
     Route: 042
     Dates: start: 20230406, end: 20230406
  6. METOCLOPRAMIDE [Concomitant]
     Active Substance: METOCLOPRAMIDE
     Dosage: MAXIMUM 3 TABLETS/DAY
     Dates: start: 20230418
  7. ELIQUIS [Concomitant]
     Active Substance: APIXABAN
     Dates: start: 20230414
  8. OXYCODONE HYDROCHLORIDE [Concomitant]
     Active Substance: OXYCODONE HYDROCHLORIDE
     Dosage: MAXIMUM 3 CAPSULES/DAY
     Dates: start: 20230117
  9. LOPERAMIDE [Concomitant]
     Active Substance: LOPERAMIDE
     Dosage: 1-2 CAPSULES AS NEEDED, MAXIMUM 8 CAPSULES/DAY
     Dates: start: 20221220
  10. LEVOTHYROXINE SODIUM [Concomitant]
     Active Substance: LEVOTHYROXINE SODIUM
     Dates: start: 20190912
  11. DULCOLAX (BISACODYL) [Concomitant]
     Active Substance: BISACODYL
     Dosage: 1-2 TABLETS AS NEEDED, MAXIMUM 2 TABLETS/DAY
     Dates: start: 20230103
  12. ACETAMINOPHEN [Concomitant]
     Active Substance: ACETAMINOPHEN
     Dates: start: 20220921
  13. PRAVASTATIN [Concomitant]
     Active Substance: PRAVASTATIN
     Dates: start: 20220317
  14. BETAPRED [Concomitant]
     Active Substance: BETAMETHASONE SODIUM PHOSPHATE
     Dosage: MAXIMUM 10 TABLETS/DAY
     Dates: start: 20220921
  15. SODIUM CHLORIDE [Concomitant]
     Active Substance: SODIUM CHLORIDE
     Route: 042
     Dates: start: 20230418
  16. SODIUM PICOSULFATE [Concomitant]
     Active Substance: SODIUM PICOSULFATE
     Dosage: 10-20 DROPS IF NEEDED
     Dates: start: 20221220
  17. POLYETHYLENE GLYCOL 3350\POTASSIUM CHLORIDE\SODIUM BICARBONATE\SODIUM [Concomitant]
     Active Substance: POLYETHYLENE GLYCOL 3350\POTASSIUM CHLORIDE\SODIUM BICARBONATE\SODIUM CHLORIDE
     Dosage: A MAXIMUM OF 3 SACHETS/DAY
     Dates: start: 20230123

REACTIONS (2)
  - Myocarditis [Fatal]
  - Vasculitis [Fatal]

NARRATIVE: CASE EVENT DATE: 20230401
